FAERS Safety Report 18804870 (Version 2)
Quarter: 2021Q1

REPORT INFORMATION
  Report Type: Spontaneous
  Country: US (occurrence: US)
  Receive Date: 20210129
  Receipt Date: 20210224
  Transmission Date: 20210419
  Serious: No
  Sender: FDA-Public Use
  Company Number: US-ELI_LILLY_AND_COMPANY-US202101012666

PATIENT
  Age: 60 Year
  Sex: Female

DRUGS (2)
  1. TRULICITY [Suspect]
     Active Substance: DULAGLUTIDE
     Indication: PRODUCT USED FOR UNKNOWN INDICATION
     Dosage: 0.75 MG, UNKNOWN
     Route: 065
     Dates: start: 202011, end: 202101
  2. TRULICITY [Suspect]
     Active Substance: DULAGLUTIDE
     Dosage: 1.5 MG, UNKNOWN
     Route: 065
     Dates: start: 202101

REACTIONS (16)
  - Vomiting [Unknown]
  - Decreased appetite [Unknown]
  - Abdominal discomfort [Unknown]
  - Weight decreased [Unknown]
  - Nausea [Unknown]
  - Feeding disorder [Unknown]
  - Gastrooesophageal reflux disease [Unknown]
  - Asthenia [Unknown]
  - Diarrhoea [Unknown]
  - Insomnia [Unknown]
  - Sleep disorder due to a general medical condition [Unknown]
  - Visual impairment [Unknown]
  - Blood pressure increased [Unknown]
  - Hypotension [Unknown]
  - Flatulence [Unknown]
  - Eye irritation [Unknown]

NARRATIVE: CASE EVENT DATE: 202101
